FAERS Safety Report 7295302-8 (Version None)
Quarter: 2011Q1

REPORT INFORMATION
  Report Type: 
  Country: None (occurrence: None)
  Receive Date: 20110211
  Receipt Date: 20110211
  Transmission Date: 20110831
  Serious: Yes (Other)
  Sender: FDA-Public Use
  Company Number: None

PATIENT
  Sex: Female

DRUGS (1)
  1. MULTAQ [Suspect]
     Dosage: 1 TABLET TWICE DAILY PO
     Route: 048
     Dates: start: 20101130, end: 20101214

REACTIONS (5)
  - POLLAKIURIA [None]
  - DYSPNOEA [None]
  - MALAISE [None]
  - BLOOD GLUCOSE DECREASED [None]
  - ASTHENIA [None]
